FAERS Safety Report 10953681 (Version 1)
Quarter: 2015Q1

REPORT INFORMATION
  Report Type: Spontaneous
  Country: US (occurrence: US)
  Receive Date: 20150325
  Receipt Date: 20150325
  Transmission Date: 20150721
  Serious: Yes (Death)
  Sender: FDA-Public Use
  Company Number: US-CIPLA LTD.-2015US02413

PATIENT

DRUGS (10)
  1. QUININE [Suspect]
     Active Substance: QUININE
  2. DIPHENHYDRAMINE [Suspect]
     Active Substance: DIPHENHYDRAMINE
  3. LAMOTRIGINE. [Suspect]
     Active Substance: LAMOTRIGINE
  4. AMPHETAMINE [Suspect]
     Active Substance: AMPHETAMINE
  5. CODEINE [Suspect]
     Active Substance: CODEINE
  6. METHADONE [Suspect]
     Active Substance: METHADONE HYDROCHLORIDE
  7. FLUOXETINE [Suspect]
     Active Substance: FLUOXETINE\FLUOXETINE HYDROCHLORIDE
  8. HEROIN [Suspect]
     Active Substance: DIACETYLMORPHINE
  9. TRAMADOL [Suspect]
     Active Substance: TRAMADOL
  10. CLONAZEPAM. [Suspect]
     Active Substance: CLONAZEPAM

REACTIONS (1)
  - Drug abuse [Fatal]
